FAERS Safety Report 4329874-X (Version None)
Quarter: 2004Q1

REPORT INFORMATION
  Report Type: 
  Country: None (occurrence: None)
  Receive Date: 20040329
  Receipt Date: 20040318
  Transmission Date: 20041129
  Serious: Yes (Death, Life-Threatening, Hospitalization)
  Sender: FDA-Public Use
  Company Number: DE-JNJFOC-20031204277

PATIENT
  Age: 87 Year
  Sex: Male

DRUGS (41)
  1. LEVOFLOXACIN [Suspect]
     Indication: PNEUMONIA
     Dosage: INTRAVENOUS
     Route: 042
     Dates: start: 20031201, end: 20031203
  2. LEVOFLOXACIN [Suspect]
     Indication: PNEUMONIA
     Dosage: ORAL
     Route: 048
     Dates: start: 20031204, end: 20031210
  3. ENOXAPARIN (HEPARIN-FRACTION, SODIUM SALT) [Suspect]
     Dosage: SEE IMAGE
     Dates: start: 20031204, end: 20031204
  4. ENOXAPARIN (HEPARIN-FRACTION, SODIUM SALT) [Suspect]
     Dosage: SEE IMAGE
     Dates: start: 20031205, end: 20031205
  5. ENOXAPARIN (HEPARIN-FRACTION, SODIUM SALT) [Suspect]
     Dosage: SEE IMAGE
     Dates: start: 20031206, end: 20031206
  6. ENOXAPARIN (HEPARIN-FRACTION, SODIUM SALT) [Suspect]
     Dosage: SEE IMAGE
     Dates: start: 20031207, end: 20031207
  7. ENOXAPARIN (HEPARIN-FRACTION, SODIUM SALT) [Suspect]
     Dosage: SEE IMAGE
     Dates: start: 20031208, end: 20031208
  8. ENOXAPARIN (HEPARIN-FRACTION, SODIUM SALT) [Suspect]
     Dosage: SEE IMAGE
     Dates: start: 20031209, end: 20031209
  9. HYDROCHLOROTHIAZIDE [Concomitant]
  10. COUMADIN [Concomitant]
  11. DIGOXIN [Concomitant]
  12. ACTOS [Concomitant]
  13. GLUCOTROL XL [Concomitant]
  14. PAXIL [Concomitant]
  15. LASIX [Concomitant]
  16. FLOMAX [Concomitant]
  17. MULTIVITAMIN [Concomitant]
  18. VITAMIN E [Concomitant]
  19. FERROUS SULFATE TAB [Concomitant]
  20. SENNA LAXATIVE (SENNA) [Concomitant]
  21. LANTUS [Concomitant]
  22. INSULIN [Concomitant]
  23. ALBUTEROL [Concomitant]
  24. ATROVENT [Concomitant]
  25. CARDIZEM [Concomitant]
  26. TYLENOL [Concomitant]
  27. ASPIRIN [Concomitant]
  28. LANOXIN [Concomitant]
  29. HYDROCHLOROTHIAZIDE [Concomitant]
  30. TRIAMTERENE (TRIAMTERENE) [Concomitant]
  31. PREVACID [Concomitant]
  32. MUCOMYST [Concomitant]
  33. SINEMET [Concomitant]
  34. AMMONIUM LACTATE (AMMONIUM LACTATE) [Concomitant]
  35. NYSTATIN [Concomitant]
  36. DARVOCET [Concomitant]
  37. MAGNESIUM CITRATE (MAGNESIUM CITRATE) [Concomitant]
  38. DULCOLAX [Concomitant]
  39. MORPHINE SULFATE [Concomitant]
  40. MAXIDE (DYAZIDE) [Concomitant]
  41. LOVENOX [Concomitant]

REACTIONS (16)
  - ACUTE MYOCARDIAL INFARCTION [None]
  - ATRIAL FIBRILLATION [None]
  - BLOOD PRESSURE DECREASED [None]
  - CHRONIC OBSTRUCTIVE AIRWAYS DISEASE EXACERBATED [None]
  - COMA [None]
  - DIABETES MELLITUS NON-INSULIN-DEPENDENT [None]
  - DIVERTICULUM [None]
  - GASTRITIS [None]
  - GASTROINTESTINAL HAEMORRHAGE [None]
  - HAEMOGLOBIN DECREASED [None]
  - OESOPHAGITIS [None]
  - PARKINSON'S DISEASE [None]
  - RECTAL HAEMORRHAGE [None]
  - RESPIRATORY ACIDOSIS [None]
  - RESPIRATORY FAILURE [None]
  - WHITE BLOOD CELL COUNT INCREASED [None]
